FAERS Safety Report 16833542 (Version 1)
Quarter: 2019Q3

REPORT INFORMATION
  Report Type: Spontaneous
  Country: DE (occurrence: DE)
  Receive Date: 20190920
  Receipt Date: 20190920
  Transmission Date: 20191005
  Serious: Yes (Other)
  Sender: FDA-Public Use
  Company Number: DE-GRUNENTHAL-2019-17593

PATIENT
  Age: 35 Year
  Sex: Male

DRUGS (6)
  1. QUTENZA [Suspect]
     Active Substance: CAPSAICIN
     Indication: PAIN
     Dosage: 1 DF, UNK
     Route: 003
     Dates: start: 201804, end: 201804
  2. ALENDRONIC ACID [Concomitant]
     Active Substance: ALENDRONIC ACID
     Indication: PRODUCT USED FOR UNKNOWN INDICATION
     Dosage: 70 MG, 1/WEEK
     Route: 048
  3. QUTENZA [Suspect]
     Active Substance: CAPSAICIN
     Indication: PAIN
  4. DRONABINOL. [Concomitant]
     Active Substance: DRONABINOL
     Indication: PRODUCT USED FOR UNKNOWN INDICATION
     Dosage: 42 GTT, 1/DAY
     Route: 048
  5. QUTENZA [Suspect]
     Active Substance: CAPSAICIN
     Indication: NEURALGIA
  6. VERSATIS 700 MG WIRKSTOFFHALTIGES PFLASTER [Concomitant]
     Indication: PAIN
     Dosage: UNK
     Route: 061

REACTIONS (1)
  - Complex regional pain syndrome [Not Recovered/Not Resolved]

NARRATIVE: CASE EVENT DATE: 201804
